FAERS Safety Report 10012202 (Version 1)
Quarter: 2014Q1

REPORT INFORMATION
  Report Type: Spontaneous
  Country: US (occurrence: None)
  Receive Date: 20140312
  Receipt Date: 20140312
  Transmission Date: 20141002
  Serious: Yes (Other)
  Sender: FDA-Public Use
  Company Number: ADR-2014-00389

PATIENT
  Sex: Female

DRUGS (2)
  1. LIORESAL INTRATHECAL(BACLOFEN INJECTION) 2000 MCG/ML [Suspect]
  2. IBUPROFEN [Suspect]
     Indication: FRACTURE PAIN

REACTIONS (2)
  - Pigmentation disorder [None]
  - Drug interaction [None]
